FAERS Safety Report 4669769-5 (Version None)
Quarter: 2005Q2

REPORT INFORMATION
  Report Type: 
  Country: None (occurrence: None)
  Receive Date: 20050520
  Receipt Date: 20050502
  Transmission Date: 20051028
  Serious: Yes (Other)
  Sender: FDA-Public Use
  Company Number: USA050597197

PATIENT
  Age: 51 Year
  Sex: Female
  Weight: 67 kg

DRUGS (6)
  1. CYMBALTA [Suspect]
     Indication: ARTHRALGIA
     Dosage: 60 MG
     Dates: start: 20050404, end: 20050427
  2. PROTONIX [Concomitant]
  3. CALCIUM GLUCONATE [Concomitant]
  4. MULTI-VITAMIN [Concomitant]
  5. FOLTX [Concomitant]
  6. DICLOFENAC [Concomitant]

REACTIONS (3)
  - BLOOD PRESSURE INCREASED [None]
  - CONSTIPATION [None]
  - HEADACHE [None]
